FAERS Safety Report 11211465 (Version 1)
Quarter: 2015Q2

REPORT INFORMATION
  Report Type: Spontaneous
  Country: US (occurrence: None)
  Receive Date: 20150622
  Receipt Date: 20150622
  Transmission Date: 20150821
  Serious: Yes (Death)
  Sender: FDA-Public Use
  Company Number: None

PATIENT
  Age: 45 Year
  Sex: Female

DRUGS (4)
  1. JOHNSONS BABY POWDER [Suspect]
     Active Substance: TALC
     Indication: THERAPEUTIC SKIN CARE TOPICAL
     Route: 061
     Dates: start: 1964, end: 2011
  2. HYDROCHLORTHIAZIDE [Concomitant]
     Active Substance: HYDROCHLOROTHIAZIDE
  3. TENORMIN [Concomitant]
     Active Substance: ATENOLOL
  4. SHOWER TO SHOWER TALCUM PRODUCT [Suspect]
     Active Substance: TALC
     Indication: THERAPEUTIC SKIN CARE TOPICAL
     Route: 061
     Dates: start: 1964, end: 2011

REACTIONS (23)
  - Gastrointestinal haemorrhage [None]
  - Metabolic acidosis [None]
  - Coagulopathy [None]
  - Hypokalaemia [None]
  - Ovarian cyst [None]
  - Pseudomyxoma peritonei [None]
  - Uterine leiomyoma [None]
  - Ovarian enlargement [None]
  - Weight decreased [None]
  - Cervicitis cystic [None]
  - Fatigue [None]
  - Chronic kidney disease [None]
  - Terminal state [None]
  - Oesophagitis ulcerative [None]
  - Malignant ascites [None]
  - Lymphadenopathy [None]
  - Anaemia [None]
  - Hypernatraemia [None]
  - Gastritis [None]
  - Gastric ulcer [None]
  - Ovarian cancer [None]
  - Nephrolithiasis [None]
  - Lactic acidosis [None]

NARRATIVE: CASE EVENT DATE: 201005
